APPROVED DRUG PRODUCT: METHYLPREDNISOLONE
Active Ingredient: METHYLPREDNISOLONE
Strength: 16MG
Dosage Form/Route: TABLET;ORAL
Application: A086159 | Product #001
Applicant: WATSON LABORATORIES INC
Approved: Feb 9, 1982 | RLD: No | RS: No | Type: DISCN